FAERS Safety Report 7292064-5 (Version None)
Quarter: 2011Q1

REPORT INFORMATION
  Report Type: 
  Country: None (occurrence: None)
  Receive Date: 20110215
  Receipt Date: 20091117
  Transmission Date: 20110831
  Serious: No
  Sender: FDA-Public Use
  Company Number: 2009BI037569

PATIENT
  Sex: Female

DRUGS (1)
  1. TYSABRI [Suspect]
     Indication: MULTIPLE SCLEROSIS
     Route: 042
     Dates: start: 20081006

REACTIONS (16)
  - BALANCE DISORDER [None]
  - HAEMORRHAGE [None]
  - CARDIAC DISORDER [None]
  - OEDEMA PERIPHERAL [None]
  - SINUS DISORDER [None]
  - DRY MOUTH [None]
  - HUNGER [None]
  - PREMENSTRUAL SYNDROME [None]
  - FALL [None]
  - URINARY INCONTINENCE [None]
  - CONTUSION [None]
  - VOMITING [None]
  - MULTIPLE SCLEROSIS [None]
  - CRYING [None]
  - SOCIAL AVOIDANT BEHAVIOUR [None]
  - HYPERSOMNIA [None]
